FAERS Safety Report 8380098-9 (Version None)
Quarter: 2012Q2

REPORT INFORMATION
  Report Type: 
  Country: None (occurrence: None)
  Receive Date: 20120523
  Receipt Date: 20120509
  Transmission Date: 20120825
  Serious: Yes (Other)
  Sender: FDA-Public Use
  Company Number: JP-AMGEN-JPNSP2012012525

PATIENT
  Age: 72 Year
  Sex: Female
  Weight: 54 kg

DRUGS (8)
  1. MUCOSTA [Concomitant]
     Dosage: 100 MG, 3X/DAY
     Route: 048
     Dates: start: 20060622
  2. LOXONIN [Concomitant]
     Dosage: 60 MG, 3X/DAY
     Route: 048
     Dates: start: 20060622
  3. SULFASALAZINE [Concomitant]
     Dosage: UNK
  4. AZULFIDINE [Concomitant]
     Dosage: 500 MG, 2X/DAY
     Route: 048
     Dates: start: 20060622
  5. MILTAX [Concomitant]
     Dosage: 30 MG, 2X/DAY
     Route: 062
     Dates: start: 20060622
  6. SIMPONI [Concomitant]
     Dosage: UNK
  7. ENBREL [Suspect]
     Indication: RHEUMATOID ARTHRITIS
     Dosage: 25 MG, 2X/WEEK
     Route: 058
     Dates: start: 20090701, end: 20120223
  8. VOLTAREN [Concomitant]
     Dosage: 25 MG, AS NEEDED
     Route: 062
     Dates: start: 20060626

REACTIONS (2)
  - PERIODONTAL DISEASE [None]
  - ORAL PRURITUS [None]
